FAERS Safety Report 9893866 (Version 1)
Quarter: 2014Q1

REPORT INFORMATION
  Report Type: Spontaneous
  Country: CA (occurrence: CA)
  Receive Date: 20140213
  Receipt Date: 20140213
  Transmission Date: 20141002
  Serious: Yes (Other)
  Sender: FDA-Public Use
  Company Number: CA-ELI_LILLY_AND_COMPANY-CA201402001361

PATIENT
  Sex: Male

DRUGS (5)
  1. HUMULIN NPH [Suspect]
     Indication: PRODUCT USED FOR UNKNOWN INDICATION
     Dosage: 30 U, EACH MORNING
     Dates: start: 201312
  2. HUMULIN NPH [Suspect]
     Dosage: 36 U, EACH MORNING
  3. HUMULIN NPH [Suspect]
     Dosage: 44 U, EACH MORNING
     Dates: start: 201401
  4. METFORMIN [Concomitant]
     Dosage: 2 DF, EACH MORNING
  5. JANUVIA [Concomitant]
     Dosage: UNK
     Dates: end: 20140201

REACTIONS (2)
  - Cerebrovascular accident [Unknown]
  - Dizziness [Recovered/Resolved]
